FAERS Safety Report 23584471 (Version 2)
Quarter: 2024Q2

REPORT INFORMATION
  Report Type: Spontaneous
  Country: NL (occurrence: NL)
  Receive Date: 20240301
  Receipt Date: 20240406
  Transmission Date: 20240716
  Serious: Yes (Disabling, Other)
  Sender: FDA-Public Use
  Company Number: NL-LRB-00947144

PATIENT
  Age: 74 Year
  Sex: Female
  Weight: 60 kg

DRUGS (2)
  1. NITROFURANTOIN [Suspect]
     Active Substance: NITROFURANTOIN
     Indication: Cystitis
     Dosage: 1 DOSAGE FORM, ONCE A DAY( 1 X 1 DAILY)
     Route: 065
     Dates: start: 20090310
  2. ALENDRONIC ACID [Concomitant]
     Active Substance: ALENDRONIC ACID
     Indication: Product used for unknown indication
     Dosage: UNK
     Route: 065

REACTIONS (1)
  - Pulmonary fibrosis [Not Recovered/Not Resolved]
